FAERS Safety Report 7488724-3 (Version None)
Quarter: 2011Q2

REPORT INFORMATION
  Report Type: 
  Country: None (occurrence: None)
  Receive Date: 20110518
  Receipt Date: 20110513
  Transmission Date: 20111010
  Serious: Yes (Other)
  Sender: FDA-Public Use
  Company Number: US-BRISTOL-MYERS SQUIBB COMPANY-15745300

PATIENT
  Age: 80 Year
  Sex: Male

DRUGS (2)
  1. GLUCOPHAGE [Suspect]
  2. TRACLEER [Suspect]

REACTIONS (4)
  - MUSCLE ATROPHY [None]
  - PULMONARY FIBROSIS [None]
  - CHRONIC OBSTRUCTIVE PULMONARY DISEASE [None]
  - PULMONARY HYPERTENSION [None]
